FAERS Safety Report 20083458 (Version 6)
Quarter: 2022Q2

REPORT INFORMATION
  Report Type: Spontaneous
  Country: CA (occurrence: CA)
  Receive Date: 20211118
  Receipt Date: 20220422
  Transmission Date: 20220721
  Serious: Yes (Hospitalization)
  Sender: FDA-Public Use
  Company Number: CA-CELLTRION INC.-2021CA015423

PATIENT

DRUGS (5)
  1. INFLECTRA [Suspect]
     Active Substance: INFLIXIMAB-DYYB
     Indication: Polychondritis
     Dosage: 1200 MG INDUCTION AT Q 0 , 2, 6 WEEK THEN EVERY 8 WEEKS
     Route: 042
     Dates: start: 20211028
  2. INFLECTRA [Suspect]
     Active Substance: INFLIXIMAB-DYYB
     Dosage: 1200 MG INDUCTION AT Q 0 , 2, 6 WEEK THEN EVERY 8 WEEKS
     Route: 042
     Dates: start: 20211108
  3. INFLECTRA [Suspect]
     Active Substance: INFLIXIMAB-DYYB
     Dosage: 1200 MG INDUCTION AT Q 0 , 2, 6 WEEK THEN EVERY 8 WEEKS
     Route: 042
     Dates: start: 20211211
  4. PREDNISONE [Concomitant]
     Active Substance: PREDNISONE
     Dosage: 1 DF, UNK DOSE
     Route: 065
  5. SULFASALAZINE [Concomitant]
     Active Substance: SULFASALAZINE
     Dosage: 1 DF
     Route: 065

REACTIONS (8)
  - Maternal exposure during pregnancy [Unknown]
  - Gestational hypertension [Recovering/Resolving]
  - Peripheral swelling [Unknown]
  - Insomnia [Unknown]
  - Muscle spasms [Unknown]
  - Condition aggravated [Not Recovered/Not Resolved]
  - Off label use [Unknown]
  - Drug ineffective for unapproved indication [Unknown]

NARRATIVE: CASE EVENT DATE: 20210101
